FAERS Safety Report 4468675-9 (Version None)
Quarter: 2004Q4

REPORT INFORMATION
  Report Type: 
  Country: None (occurrence: None)
  Receive Date: 20041007
  Receipt Date: 20041005
  Transmission Date: 20050328
  Serious: Yes (Death, Hospitalization, Disabling)
  Sender: FDA-Public Use
  Company Number: US-MERCK-0410USA00521

PATIENT
  Age: 75 Year
  Sex: Male

DRUGS (13)
  1. ASPIRIN [Concomitant]
     Route: 065
  2. ATENOLOL [Concomitant]
     Route: 065
  3. CASODEX [Concomitant]
     Route: 065
  4. COLACE [Concomitant]
     Route: 065
  5. MARINOL [Concomitant]
     Route: 065
  6. FLECAINIDE ACETATE [Concomitant]
     Route: 065
  7. HORMONES (UNSPECIFIED) [Concomitant]
     Route: 065
  8. MAGNESIUM OXIDE [Concomitant]
     Route: 065
  9. PROTONIX [Concomitant]
     Route: 065
  10. PREDNISONE [Concomitant]
     Route: 065
  11. VIOXX [Concomitant]
     Route: 048
  12. SENOKOT [Concomitant]
     Route: 065
  13. ZOCOR [Suspect]
     Indication: DYSLIPIDAEMIA
     Route: 048
     Dates: end: 20040610

REACTIONS (2)
  - DEATH [None]
  - MYOSITIS [None]
